FAERS Safety Report 18734376 (Version 1)
Quarter: 2021Q1

REPORT INFORMATION
  Report Type: Spontaneous
  Country: US (occurrence: US)
  Receive Date: 20210112
  Receipt Date: 20210112
  Transmission Date: 20210419
  Serious: Yes (Hospitalization)
  Sender: FDA-Public Use
  Company Number: None

PATIENT
  Age: 67 Year
  Sex: Female

DRUGS (1)
  1. CASIRIVIMAB/IMDEVIMAB [Suspect]
     Active Substance: CASIRIVIMAB\IMDEVIMAB
     Indication: SARS-COV-2 TEST POSITIVE
     Dosage: ?          OTHER FREQUENCY:ONCE;?
     Route: 042
     Dates: start: 20210108, end: 20210108

REACTIONS (7)
  - Troponin increased [None]
  - Tachycardia [None]
  - Hypoxia [None]
  - Back pain [None]
  - Blood pressure increased [None]
  - Pyrexia [None]
  - Myocardial ischaemia [None]

NARRATIVE: CASE EVENT DATE: 20210108
